FAERS Safety Report 8335588-1 (Version None)
Quarter: 2012Q2

REPORT INFORMATION
  Report Type: 
  Country: None (occurrence: None)
  Receive Date: 20120504
  Receipt Date: 20120501
  Transmission Date: 20120825
  Serious: Yes (Death, Hospitalization, Other)
  Sender: FDA-Public Use
  Company Number: US-BIOGENIDEC-2011BI010449

PATIENT
  Age: 43 Year
  Sex: Female
  Weight: 74 kg

DRUGS (4)
  1. LEVOTHYROXINE SODIUM [Concomitant]
     Indication: GOITRE
     Route: 048
  2. TYSABRI [Suspect]
     Indication: MULTIPLE SCLEROSIS
     Route: 042
     Dates: start: 20100105, end: 20110203
  3. DEPO-PROVERA [Concomitant]
     Route: 030
  4. LORAZEPAM [Concomitant]
     Route: 048

REACTIONS (9)
  - SMALL INTESTINAL OBSTRUCTION [None]
  - URINARY TRACT INFECTION BACTERIAL [None]
  - GOITRE [None]
  - CONSTIPATION [None]
  - COMA [None]
  - MALIGNANT MELANOMA OF SITES OTHER THAN SKIN [None]
  - ANAEMIA [None]
  - METASTATIC NEOPLASM [None]
  - POST PROCEDURAL COMPLICATION [None]
